FAERS Safety Report 26160030 (Version 2)
Quarter: 2025Q4

REPORT INFORMATION
  Report Type: Spontaneous
  Country: US (occurrence: US)
  Receive Date: 20251216
  Receipt Date: 20251222
  Transmission Date: 20260118
  Serious: No
  Sender: LUPIN
  Company Number: US-LUPIN PHARMACEUTICALS INC.-2025-11187

PATIENT
  Weight: 62.132 kg

DRUGS (1)
  1. PREDNISOLONE ACETATE [Suspect]
     Active Substance: PREDNISOLONE ACETATE
     Indication: Corneal transplant
     Dosage: 1 DROP, QD, IN BOTH EYES

REACTIONS (4)
  - Device delivery system issue [Unknown]
  - Extra dose administered [Unknown]
  - Product quality issue [Unknown]
  - No adverse event [Unknown]
